FAERS Safety Report 6649598-3 (Version None)
Quarter: 2010Q1

REPORT INFORMATION
  Report Type: 
  Country: None (occurrence: None)
  Receive Date: 20100324
  Receipt Date: 20100324
  Transmission Date: 20100710
  Serious: Yes (Hospitalization)
  Sender: FDA-Public Use
  Company Number: None

PATIENT
  Sex: Female
  Weight: 68 kg

DRUGS (1)
  1. TRILEPTAL [Suspect]
     Indication: BIPOLAR DISORDER
     Dosage: 600 MG BID PO
     Route: 048
     Dates: start: 20080601, end: 20090111

REACTIONS (9)
  - ASCITES [None]
  - ASTHENIA [None]
  - HYPONATRAEMIA [None]
  - INFLAMMATION [None]
  - NAUSEA [None]
  - POST PROCEDURAL COMPLICATION [None]
  - PROCEDURAL PAIN [None]
  - VOMITING [None]
  - WEIGHT INCREASED [None]
